FAERS Safety Report 23955924 (Version 1)
Quarter: 2024Q2

REPORT INFORMATION
  Report Type: Spontaneous
  Country: CN (occurrence: CN)
  Receive Date: 20240610
  Receipt Date: 20240610
  Transmission Date: 20240716
  Serious: Yes (Hospitalization)
  Sender: FDA-Public Use
  Company Number: CN-SA-SAC20240606000748

PATIENT
  Age: 79 Year
  Sex: Female

DRUGS (4)
  1. PLAVIX [Suspect]
     Active Substance: CLOPIDOGREL BISULFATE
     Indication: Antiplatelet therapy
     Dosage: 75 MG, QD
     Route: 048
     Dates: start: 20240512, end: 20240524
  2. ASPIRIN [Suspect]
     Active Substance: ASPIRIN
     Indication: Antiplatelet therapy
     Dosage: 100 MG, QD
     Route: 048
     Dates: start: 20240514, end: 20240521
  3. ASPIRIN [Suspect]
     Active Substance: ASPIRIN
     Dosage: 300 MG, QD
     Route: 048
     Dates: start: 20240515
  4. ENOXAPARIN SODIUM [Suspect]
     Active Substance: ENOXAPARIN SODIUM
     Indication: Anticoagulant therapy
     Dosage: 0.3 ML, Q12H
     Route: 058
     Dates: start: 20240515, end: 20240518

REACTIONS (7)
  - Peripheral swelling [Unknown]
  - Pain in extremity [Unknown]
  - Contusion [Recovering/Resolving]
  - Haemorrhage subcutaneous [Recovering/Resolving]
  - Condition aggravated [Recovering/Resolving]
  - Anaemia [Unknown]
  - Occult blood positive [Recovering/Resolving]

NARRATIVE: CASE EVENT DATE: 20240518
